FAERS Safety Report 8608234-7 (Version None)
Quarter: 2012Q3

REPORT INFORMATION
  Report Type: 
  Country: None (occurrence: None)
  Receive Date: 20120821
  Receipt Date: 20120817
  Transmission Date: 20120928
  Serious: Yes (Life-Threatening, Hospitalization)
  Sender: FDA-Public Use
  Company Number: JP-ASTRAZENECA-2012SE49699

PATIENT
  Age: 70 Year
  Sex: Female

DRUGS (2)
  1. TRIMETHOPRIM [Suspect]
     Route: 065
     Dates: start: 20120615, end: 20120615
  2. XYLOCAINE [Suspect]
     Indication: OSTEOARTHRITIS
     Route: 065
     Dates: start: 20120615, end: 20120615

REACTIONS (1)
  - ANAPHYLACTIC SHOCK [None]
